FAERS Safety Report 9664878 (Version 1)
Quarter: 2013Q4

REPORT INFORMATION
  Report Type: Spontaneous
  Country: US (occurrence: US)
  Receive Date: 20131101
  Receipt Date: 20131101
  Transmission Date: 20140711
  Serious: Yes (Hospitalization)
  Sender: FDA-Public Use
  Company Number: US-009507513-1310USA014104

PATIENT
  Age: 19 Year
  Sex: Female

DRUGS (1)
  1. NUVARING [Suspect]
     Dosage: UNK
     Route: 067
     Dates: start: 20110210, end: 20111026

REACTIONS (1)
  - Deep vein thrombosis [Unknown]
